FAERS Safety Report 9117755 (Version 1)
Quarter: 2013Q1

REPORT INFORMATION
  Report Type: Spontaneous
  Country: ZA (occurrence: ZA)
  Receive Date: 20130225
  Receipt Date: 20130225
  Transmission Date: 20140127
  Serious: Yes (Other)
  Sender: FDA-Public Use
  Company Number: ZA-RANBAXY-2013R5-65300

PATIENT
  Sex: Female

DRUGS (1)
  1. KLARITHRAN [Suspect]
     Indication: PRODUCT USED FOR UNKNOWN INDICATION
     Dosage: 500 MG, BID
     Route: 065
     Dates: start: 20130207, end: 20130208

REACTIONS (3)
  - Diarrhoea [Unknown]
  - Incoherent [Unknown]
  - Disorientation [Unknown]
